FAERS Safety Report 19922153 (Version 1)
Quarter: 2021Q4

REPORT INFORMATION
  Report Type: Report from Study
  Country: US (occurrence: US)
  Receive Date: 20211005
  Receipt Date: 20211005
  Transmission Date: 20220303
  Serious: Yes (Other)
  Sender: FDA-Public Use
  Company Number: US-SANOFI-00539878

PATIENT
  Age: 70 Year
  Sex: Female

DRUGS (2)
  1. TERIFLUNOMIDE [Suspect]
     Active Substance: TERIFLUNOMIDE
     Dosage: UNK
     Route: 065
     Dates: end: 202103
  2. TERIFLUNOMIDE [Suspect]
     Active Substance: TERIFLUNOMIDE
     Dosage: UNK
     Route: 065
     Dates: start: 2021, end: 20210922

REACTIONS (13)
  - Hemiparesis [Unknown]
  - Grip strength decreased [Unknown]
  - Tinnitus [Recovered/Resolved]
  - Tremor [Recovered/Resolved]
  - Diplopia [Unknown]
  - Overweight [Unknown]
  - Paraesthesia [Recovered/Resolved]
  - Cognitive disorder [Unknown]
  - Memory impairment [Unknown]
  - Stress [Unknown]
  - Dysphonia [Unknown]
  - Product dose omission issue [Unknown]
  - Unevaluable event [Unknown]

NARRATIVE: CASE EVENT DATE: 20210301
